FAERS Safety Report 21587593 (Version 1)
Quarter: 2022Q4

REPORT INFORMATION
  Report Type: Other
  Country: DE (occurrence: DE)
  Receive Date: 20221114
  Receipt Date: 20221114
  Transmission Date: 20230113
  Serious: Yes (Disabling, Other)
  Sender: FDA-Public Use
  Company Number: DE-DEXPHARM-20222271

PATIENT
  Age: 67 Year

DRUGS (3)
  1. OZURDEX [Suspect]
     Active Substance: DEXAMETHASONE
     Indication: Macular oedema
     Dosage: SUSTAINED-RELEASE INTRAVITREAL IMPLANT
     Route: 050
  2. NEPAFENAC [Concomitant]
     Active Substance: NEPAFENAC
     Indication: Macular detachment
     Dosage: UNKNOWN
  3. EPLERENONE [Concomitant]
     Active Substance: EPLERENONE
     Indication: Macular detachment
     Dosage: UNKNOWN

REACTIONS (2)
  - Central serous chorioretinopathy [Recovered/Resolved]
  - Macular detachment [Recovered/Resolved]
